FAERS Safety Report 6518827-9 (Version None)
Quarter: 2009Q4

REPORT INFORMATION
  Report Type: 
  Country: None (occurrence: None)
  Receive Date: 20091228
  Receipt Date: 20091217
  Transmission Date: 20100525
  Serious: No
  Sender: FDA-Public Use
  Company Number: KR-JNJFOC-20091205526

PATIENT

DRUGS (1)
  1. DURAGESIC-100 [Suspect]
     Indication: DRUG USE FOR UNKNOWN INDICATION
     Dosage: HALF PATCH OF 25 UG/HR
     Route: 062

REACTIONS (1)
  - DRUG PRESCRIBING ERROR [None]
